FAERS Safety Report 8303549-4 (Version None)
Quarter: 2012Q2

REPORT INFORMATION
  Report Type: 
  Country: None (occurrence: None)
  Receive Date: 20120418
  Receipt Date: 20120412
  Transmission Date: 20120825
  Serious: Yes (Life-Threatening, Hospitalization, Other)
  Sender: FDA-Public Use
  Company Number: WAES 1204GBR00045

PATIENT

DRUGS (1)
  1. MONTELUKAST SODIUM [Suspect]
     Indication: COUGH
     Dosage: UNK, PO
     Route: 048
     Dates: start: 20120411

REACTIONS (4)
  - DYSPNOEA [None]
  - OFF LABEL USE [None]
  - THROAT TIGHTNESS [None]
  - NO THERAPEUTIC RESPONSE [None]
